FAERS Safety Report 9643284 (Version 1)
Quarter: 2013Q4

REPORT INFORMATION
  Report Type: Spontaneous
  Country: US (occurrence: US)
  Receive Date: 20131024
  Receipt Date: 20131024
  Transmission Date: 20140711
  Serious: Yes (Hospitalization)
  Sender: FDA-Public Use
  Company Number: US-ABBVIE-13P-163-1158508-00

PATIENT
  Sex: Female

DRUGS (3)
  1. HUMIRA [Suspect]
     Indication: CROHN^S DISEASE
     Dosage: LOADING DOSE
     Route: 058
     Dates: start: 201306, end: 201306
  2. HUMIRA [Suspect]
     Route: 058
     Dates: start: 2013, end: 2013
  3. HUMIRA [Suspect]
     Route: 058

REACTIONS (6)
  - Chills [Unknown]
  - Pyrexia [Unknown]
  - Diarrhoea [Unknown]
  - Drug ineffective [Unknown]
  - Weight decreased [Not Recovered/Not Resolved]
  - Condition aggravated [Unknown]
